FAERS Safety Report 5808075-X (Version None)
Quarter: 2008Q3

REPORT INFORMATION
  Report Type: 
  Country: None (occurrence: None)
  Receive Date: 20080711
  Receipt Date: 20080630
  Transmission Date: 20090109
  Serious: Yes (Hospitalization)
  Sender: FDA-Public Use
  Company Number: US-WATSON-2008-03908

PATIENT
  Sex: Female

DRUGS (1)
  1. LOW-OGESTREL 0.3/30-28 (WATSON LABORATORIES) [Suspect]
     Indication: MENORRHAGIA
     Dosage: 0.03 MG/ 0.30 MG (1 TABLET) DAILY
     Route: 048
     Dates: start: 20071001, end: 20080201

REACTIONS (5)
  - BLOOD PRESSURE INCREASED [None]
  - MALAISE [None]
  - METRORRHAGIA [None]
  - PALPITATIONS [None]
  - UTERINE DILATION AND CURETTAGE [None]
